FAERS Safety Report 8115417-1 (Version None)
Quarter: 2012Q1

REPORT INFORMATION
  Report Type: 
  Country: None (occurrence: None)
  Receive Date: 20120118
  Receipt Date: 20120111
  Transmission Date: 20120608
  Serious: Yes (Other)
  Sender: FDA-Public Use
  Company Number: 2011029415

PATIENT
  Age: 68 Year
  Sex: Female
  Weight: 66.2252 kg

DRUGS (18)
  1. CALAN [Concomitant]
  2. BENZONATATE [Concomitant]
  3. ZEMAIRA [Suspect]
     Indication: ALPHA-1 ANTI-TRYPSIN DEFICIENCY
     Dosage: SEE IMAGE
     Dates: start: 20101122
  4. ZEMAIRA [Suspect]
     Indication: EMPHYSEMA
     Dosage: SEE IMAGE
     Dates: start: 20101122
  5. XANAX [Concomitant]
  6. ADVAIR HFA [Concomitant]
  7. ORPHENADRINE CITRATE [Concomitant]
  8. ZYRTEC [Concomitant]
  9. ZEMAIRA [Suspect]
     Dates: start: 20101122
  10. PRAVASTATIN [Concomitant]
  11. LYRICA [Concomitant]
  12. AVAPRO [Concomitant]
  13. MAXZIDE [Concomitant]
  14. OXYGEN [Concomitant]
  15. ZEMAIRA [Suspect]
     Dates: start: 20101122
  16. MULTIVITAMIN ACCOMIN MULTIVITAMIN) [Concomitant]
  17. SODIUM CHLORIDE [Concomitant]
  18. ALBUTEROL [Concomitant]

REACTIONS (4)
  - VOMITING [None]
  - INFUSION RELATED REACTION [None]
  - NAUSEA [None]
  - LOWER RESPIRATORY TRACT INFECTION [None]
